FAERS Safety Report 14256633 (Version 1)
Quarter: 2017Q4

REPORT INFORMATION
  Report Type: Spontaneous
  Country: LT (occurrence: LT)
  Receive Date: 20171206
  Receipt Date: 20171206
  Transmission Date: 20180321
  Serious: Yes (Hospitalization)
  Sender: FDA-Public Use
  Company Number: LT-ELI_LILLY_AND_COMPANY-LT201711013005

PATIENT
  Age: 65 Year
  Sex: Male
  Weight: 70 kg

DRUGS (3)
  1. ERBITUX [Suspect]
     Active Substance: CETUXIMAB
     Indication: OROPHARYNGEAL CANCER
     Dosage: UNK UNK, UNKNOWN
     Route: 042
     Dates: start: 20171108
  2. DEXAMETHASONE. [Concomitant]
     Active Substance: DEXAMETHASONE
     Indication: PREMEDICATION
     Dosage: 2 DF, UNKNOWN
     Route: 042
     Dates: start: 20171108
  3. TAVEGIL                            /00137201/ [Concomitant]
     Active Substance: CLEMASTINE FUMARATE
     Indication: PREMEDICATION
     Dosage: 2 DF, UNKNOWN
     Route: 042
     Dates: start: 20171108

REACTIONS (1)
  - Heart rate abnormal [Recovered/Resolved]

NARRATIVE: CASE EVENT DATE: 20171112
